FAERS Safety Report 4822048-5 (Version None)
Quarter: 2005Q4

REPORT INFORMATION
  Report Type: 
  Country: None (occurrence: None)
  Receive Date: 20051103
  Receipt Date: 20051014
  Transmission Date: 20060501
  Serious: Yes (Death)
  Sender: FDA-Public Use
  Company Number: GBS050918559

PATIENT
  Age: 45 Year
  Sex: Male

DRUGS (1)
  1. ZYPREXA [Suspect]

REACTIONS (2)
  - BLOOD GLUCOSE INCREASED [None]
  - OVERWEIGHT [None]
